FAERS Safety Report 19276151 (Version 5)
Quarter: 2021Q2

REPORT INFORMATION
  Report Type: Report from Study
  Country: GB (occurrence: GB)
  Receive Date: 20210519
  Receipt Date: 20210630
  Transmission Date: 20210717
  Serious: Yes (Hospitalization, Other)
  Sender: FDA-Public Use
  Company Number: GB-TAKEDA-2021TUS029503

PATIENT
  Sex: Male

DRUGS (1)
  1. IXAZOMIB [Suspect]
     Active Substance: IXAZOMIB
     Indication: PLASMA CELL MYELOMA
     Dosage: 4 MILLIGRAM
     Route: 048
     Dates: start: 20210430

REACTIONS (14)
  - Neuropathy peripheral [Not Recovered/Not Resolved]
  - Dry skin [Unknown]
  - Dyspnoea [Not Recovered/Not Resolved]
  - Gait disturbance [Unknown]
  - Pollakiuria [Unknown]
  - Fatigue [Not Recovered/Not Resolved]
  - Back pain [Unknown]
  - Constipation [Recovering/Resolving]
  - Chest pain [Recovering/Resolving]
  - Nausea [Recovered/Resolved]
  - Malaise [Unknown]
  - Body temperature increased [Unknown]
  - Dry mouth [Unknown]
  - Headache [Recovering/Resolving]

NARRATIVE: CASE EVENT DATE: 20210430
